FAERS Safety Report 20901873 (Version 1)
Quarter: 2022Q2

REPORT INFORMATION
  Report Type: Spontaneous
  Country: DE (occurrence: DE)
  Receive Date: 20220601
  Receipt Date: 20220601
  Transmission Date: 20220720
  Serious: Yes (Other)
  Sender: FDA-Public Use
  Company Number: DE-TAKEDA-2022TUS035692

PATIENT

DRUGS (2)
  1. OBIZUR [Suspect]
     Active Substance: ANTIHEMOPHILIC FACTOR PORCINE, B-DOMAIN TRUNCATED RECOMBINANT
     Indication: Factor VIII deficiency
     Dosage: UNK
     Route: 065
  2. OBIZUR [Suspect]
     Active Substance: ANTIHEMOPHILIC FACTOR PORCINE, B-DOMAIN TRUNCATED RECOMBINANT
     Indication: Factor VIII deficiency
     Dosage: UNK
     Route: 065

REACTIONS (2)
  - Cross sensitivity reaction [Unknown]
  - Anti factor VIII antibody positive [Unknown]
